FAERS Safety Report 6275280-0 (Version None)
Quarter: 2009Q3

REPORT INFORMATION
  Report Type: 
  Country: None (occurrence: None)
  Receive Date: 20090721
  Receipt Date: 20090713
  Transmission Date: 20100115
  Serious: Yes (Other)
  Sender: FDA-Public Use
  Company Number: A0788620A

PATIENT
  Age: 55 Year
  Sex: Male
  Weight: 72.7 kg

DRUGS (6)
  1. VALTREX [Suspect]
     Indication: HERPES VIRUS INFECTION
     Dosage: 500MG TWICE PER DAY
     Route: 048
     Dates: start: 20081001, end: 20090528
  2. EPZICOM [Concomitant]
     Indication: HIV INFECTION
     Dosage: 1TAB PER DAY
     Route: 048
  3. VIRAMUNE [Concomitant]
     Indication: HIV INFECTION
     Dosage: 400MG PER DAY
     Route: 048
  4. VIREAD [Concomitant]
     Indication: HIV INFECTION
     Dosage: 300MG PER DAY
     Route: 048
  5. AVAPRO [Concomitant]
     Indication: HYPERTENSION
     Dosage: 150MG PER DAY
     Route: 048
  6. KLONOPIN [Concomitant]
     Indication: ANXIETY
     Dosage: 1MG AT NIGHT
     Route: 048

REACTIONS (11)
  - ABDOMINAL MASS [None]
  - ABDOMINAL PAIN [None]
  - ANXIETY [None]
  - CONDITION AGGRAVATED [None]
  - DEPRESSION [None]
  - DIARRHOEA [None]
  - FATIGUE [None]
  - GASTROINTESTINAL DISORDER [None]
  - LEUKOPENIA [None]
  - NEUTROPHIL COUNT DECREASED [None]
  - THROMBOCYTOPENIA [None]
